FAERS Safety Report 5026029-0 (Version None)
Quarter: 2006Q2

REPORT INFORMATION
  Report Type: 
  Country: None (occurrence: None)
  Receive Date: 20060614
  Receipt Date: 20060605
  Transmission Date: 20061013
  Serious: Yes (Other)
  Sender: FDA-Public Use
  Company Number: BR-ROCHE-450721

PATIENT
  Age: 30 Year
  Sex: Female
  Weight: 59 kg

DRUGS (4)
  1. RIVOTRIL [Suspect]
     Indication: DEPRESSION
     Route: 060
     Dates: start: 20030615, end: 20040615
  2. RIVOTRIL [Suspect]
     Route: 048
     Dates: start: 20040615
  3. SERTRALINE [Concomitant]
     Indication: DEPRESSION
     Route: 048
  4. TYLENOL (CAPLET) [Concomitant]
     Dosage: DRUG NAME REPORTED AS TYLENOL DC
     Route: 048

REACTIONS (5)
  - CONVULSION [None]
  - EYE PAIN [None]
  - HEADACHE [None]
  - HYPERAESTHESIA [None]
  - TREMOR [None]
